FAERS Safety Report 18624211 (Version 1)
Quarter: 2020Q4

REPORT INFORMATION
  Report Type: Spontaneous
  Country: DE (occurrence: DE)
  Receive Date: 20201216
  Receipt Date: 20201216
  Transmission Date: 20210114
  Serious: Yes (Other)
  Sender: FDA-Public Use
  Company Number: DE-ASTRAZENECA-2020SF65359

PATIENT
  Age: 71 Year
  Sex: Female

DRUGS (8)
  1. CORTICOSTEROIDS [Concomitant]
     Active Substance: CORTICOSTEROID NOS
     Dosage: IF REQUIRED BY HERSELF
     Route: 048
     Dates: start: 20200514
  2. CORTICOSTEROIDS [Concomitant]
     Active Substance: CORTICOSTEROID NOS
     Dosage: IF REQUIRED BY HERSELF
     Route: 048
     Dates: start: 20201120
  3. ELLIPTA [Concomitant]
     Dosage: 184/9 MCG 1X1 DOSAGE (HIGH DOSE)
     Dates: start: 20180914
  4. MONTELUKAST [Concomitant]
     Active Substance: MONTELUKAST SODIUM
     Dates: start: 20180914
  5. TIOTROPIUM RESPIMAT [Concomitant]
     Active Substance: TIOTROPIUM
     Dosage: 2 DOSAGES EARLY
     Dates: start: 20180914
  6. CORTICOSTEROIDS [Concomitant]
     Active Substance: CORTICOSTEROID NOS
     Dosage: 0
     Route: 048
     Dates: start: 20200110
  7. CORTICOSTEROIDS [Concomitant]
     Active Substance: CORTICOSTEROID NOS
     Dosage: IF REQUIRED BY HERSELF
     Route: 048
     Dates: start: 20200918
  8. FASENRA [Suspect]
     Active Substance: BENRALIZUMAB
     Indication: ASTHMA
     Route: 058
     Dates: start: 20200110

REACTIONS (1)
  - Asthma [Recovering/Resolving]
